FAERS Safety Report 22622446 (Version 1)
Quarter: 2023Q2

REPORT INFORMATION
  Report Type: Spontaneous
  Country: US (occurrence: US)
  Receive Date: 20230621
  Receipt Date: 20230621
  Transmission Date: 20230721
  Serious: Yes (Other)
  Sender: FDA-Public Use
  Company Number: US-STRIDES ARCOLAB LIMITED-2023SP006295

PATIENT
  Age: 57 Year
  Sex: Female

DRUGS (10)
  1. MINOCYCLINE [Suspect]
     Active Substance: MINOCYCLINE HYDROCHLORIDE
     Indication: Granuloma annulare
     Dosage: 100 MILLIGRAM, 1 MONTH, ROM [RIFAMPIN, OFLOXACIN, AND MINOCYCLINE] THERAPY) IN A SINGLE ORAL DOSE ON
     Route: 048
  2. TRIAMCINOLONE ACETONIDE [Suspect]
     Active Substance: TRIAMCINOLONE ACETONIDE
     Indication: Granuloma annulare
     Dosage: UNK, CREAM
     Route: 061
  3. TRIAMCINOLONE ACETONIDE [Suspect]
     Active Substance: TRIAMCINOLONE ACETONIDE
     Dosage: UNK, 2.5MG/CC INJECTIONS
     Route: 026
  4. CLOBETASOL [Suspect]
     Active Substance: CLOBETASOL
     Indication: Granuloma annulare
     Dosage: UNK, BID, TWICE A DAY 5 TIMES WEEKLY
     Route: 061
  5. RIFAMPIN [Suspect]
     Active Substance: RIFAMPIN
     Indication: Granuloma annulare
     Dosage: 600 MILLIGRAM, 1MONTH (ROM [RIFAMPIN, OFLOXACIN, AND MINOCYCLINE] THERAPY) IN A SINGLE ORAL DOSE ONC
     Route: 048
  6. OFLOXACIN [Suspect]
     Active Substance: OFLOXACIN
     Indication: Granuloma annulare
     Dosage: 400 MILLIGRAM, 1 MONTH (ROM [RIFAMPIN, OFLOXACIN, AND MINOCYCLINE] THERAPY) IN A SINGLE ORAL DOSE ON
     Route: 048
  7. RUXOLITINIB [Suspect]
     Active Substance: RUXOLITINIB
     Indication: Granuloma annulare
     Dosage: UNK, BID, TWICE A DAY FOR 6 WEEKS
     Route: 061
  8. ETANERCEPT [Concomitant]
     Active Substance: ETANERCEPT
     Indication: Rheumatoid arthritis
     Dosage: UNK
     Route: 065
  9. METHOTREXATE [Concomitant]
     Active Substance: METHOTREXATE
     Indication: Rheumatoid arthritis
     Dosage: UNK
     Route: 065
  10. CLOTRIMAZOLE [Concomitant]
     Active Substance: CLOTRIMAZOLE
     Indication: Product used for unknown indication
     Dosage: UNK
     Route: 061

REACTIONS (2)
  - Drug ineffective [Unknown]
  - Off label use [Unknown]
